FAERS Safety Report 5762150-7 (Version None)
Quarter: 2008Q2

REPORT INFORMATION
  Report Type: 
  Country: None (occurrence: None)
  Receive Date: 20080604
  Receipt Date: 20080523
  Transmission Date: 20081010
  Serious: Yes (Hospitalization, Other)
  Sender: FDA-Public Use
  Company Number: GXKR2008KR04727

PATIENT
  Age: 62 Year
  Sex: Male

DRUGS (2)
  1. PREDNISONE [Suspect]
  2. TACROLIMUS [Suspect]

REACTIONS (1)
  - ACUTE PROMYELOCYTIC LEUKAEMIA [None]
